FAERS Safety Report 6046624-X (Version None)
Quarter: 2009Q1

REPORT INFORMATION
  Report Type: 
  Country: None (occurrence: None)
  Receive Date: 20090122
  Receipt Date: 20090115
  Transmission Date: 20090719
  Serious: Yes (Other)
  Sender: FDA-Public Use
  Company Number: PHHY2008BR32132

PATIENT
  Age: 78 Year
  Sex: Male
  Weight: 72 kg

DRUGS (11)
  1. TEGRETOL [Suspect]
     Indication: BIPOLAR DISORDER
     Dosage: 200 MG, Q12H
     Route: 048
  2. TEGRETOL [Suspect]
     Dosage: 1/2 TB, BID
  3. TEGRETOL [Suspect]
     Dosage: 1 DF, BID
  4. AMARYL [Concomitant]
     Indication: TYPE 2 DIABETES MELLITUS
     Dosage: 1 TABLET DAILY
     Route: 048
     Dates: end: 20090112
  5. SOTALOL HCL [Concomitant]
     Indication: TACHYCARDIA
     Dosage: 1 TABLET DAILY
     Route: 048
  6. ALLOPURINOL [Concomitant]
     Indication: BLOOD URIC ACID
     Dosage: HALF TABLET AFTER LUNCH
     Route: 048
  7. AMLODIPINE BESILATE [Concomitant]
     Indication: BLOOD PRESSURE INCREASED
     Dosage: 1 TABLET DAILY
     Route: 048
     Dates: end: 20090107
  8. CENTRUM SILVER [Concomitant]
     Indication: VITAMIN SUPPLEMENTATION
     Dosage: 1 TABLET DAILY
     Route: 048
  9. OYSCO [Concomitant]
     Indication: BLOOD CALCIUM ABNORMAL
     Dosage: 1 TABLET DAILY
     Route: 048
  10. CRANBERRY [Concomitant]
     Indication: RENAL FAILURE CHRONIC
     Dosage: ONE TABLET DAILY
     Route: 048
  11. NUTRICAL [Concomitant]

REACTIONS (4)
  - BURNING SENSATION [None]
  - DIABETIC NEUROPATHY [None]
  - HYPOAESTHESIA [None]
  - PARAESTHESIA [None]
